FAERS Safety Report 13996909 (Version 2)
Quarter: 2017Q4

REPORT INFORMATION
  Report Type: Other
  Country: IT (occurrence: IT)
  Receive Date: 20170921
  Receipt Date: 20171023
  Transmission Date: 20180321
  Serious: Yes (Other)
  Sender: FDA-Public Use
  Company Number: IT-APOTEX-2017AP018425

PATIENT
  Age: 94 Year
  Sex: Male
  Weight: 70 kg

DRUGS (12)
  1. ARIXTRA [Concomitant]
     Active Substance: FONDAPARINUX SODIUM
     Indication: PRODUCT USED FOR UNKNOWN INDICATION
     Dosage: UNK
     Route: 065
  2. QUETIAPINA DOC GENERICI COMPRESSE RIVESTITE CON FILM [Suspect]
     Active Substance: QUETIAPINE
     Indication: AGITATION
     Dosage: 25 MG, QD
     Route: 048
     Dates: start: 20160101
  3. QUETIAPINA DOC GENERICI COMPRESSE RIVESTITE CON FILM [Suspect]
     Active Substance: QUETIAPINE
     Dosage: 25 MG, DAILY
     Route: 048
     Dates: start: 20160701
  4. TRAZODONE HYDROCHLORIDE. [Suspect]
     Active Substance: TRAZODONE HYDROCHLORIDE
     Indication: AGITATION
     Dosage: 60 MG, DAILY
     Route: 048
     Dates: start: 20170725
  5. PANTOPRAZOLE [Suspect]
     Active Substance: PANTOPRAZOLE
     Indication: PROPHYLAXIS AGAINST GASTROINTESTINAL ULCER
     Dosage: 20 MG, UNK
     Route: 048
     Dates: start: 20170727
  6. FUROSEMIDE. [Concomitant]
     Active Substance: FUROSEMIDE
     Indication: PRODUCT USED FOR UNKNOWN INDICATION
     Dosage: UNK
     Route: 065
  7. ACETYLSALICYLIC ACID [Concomitant]
     Active Substance: ASPIRIN
     Indication: PRODUCT USED FOR UNKNOWN INDICATION
     Dosage: 100 MG, UNK
     Route: 065
  8. TICLOPIDINE [Concomitant]
     Active Substance: TICLOPIDINE
     Indication: PRODUCT USED FOR UNKNOWN INDICATION
     Dosage: UNK
     Route: 065
  9. BISOPROLOL FUMARATE. [Concomitant]
     Active Substance: BISOPROLOL FUMARATE
     Indication: PRODUCT USED FOR UNKNOWN INDICATION
     Dosage: UNK
     Route: 065
  10. DUTASTERIDE. [Concomitant]
     Active Substance: DUTASTERIDE
     Indication: PRODUCT USED FOR UNKNOWN INDICATION
     Dosage: UNK
     Route: 065
  11. CITALOPRAM [Suspect]
     Active Substance: CITALOPRAM HYDROBROMIDE
     Indication: DEPRESSION
     Dosage: 20 MG, DAILY
     Route: 048
     Dates: start: 20160101
  12. RAMIPRIL. [Concomitant]
     Active Substance: RAMIPRIL
     Indication: PRODUCT USED FOR UNKNOWN INDICATION
     Dosage: UNK
     Route: 065

REACTIONS (2)
  - Electrocardiogram QT prolonged [Recovering/Resolving]
  - Drug interaction [Recovering/Resolving]

NARRATIVE: CASE EVENT DATE: 20170728
